FAERS Safety Report 10559531 (Version 1)
Quarter: 2014Q4

REPORT INFORMATION
  Report Type: Spontaneous
  Country: ES (occurrence: None)
  Receive Date: 20141030
  Receipt Date: 20141030
  Transmission Date: 20150529
  Serious: Yes (Disabling)
  Sender: FDA-Public Use
  Company Number: ESP-SPN-2009002

PATIENT
  Age: 16 Year
  Sex: Female

DRUGS (4)
  1. FOLIC ACID. [Concomitant]
     Active Substance: FOLIC ACID
  2. PYRIDOXINE [Concomitant]
     Active Substance: PYRIDOXINE
  3. CYSTADANE [Suspect]
     Active Substance: BETAINE
     Indication: HOMOCYSTINURIA
     Dosage: EVERY DAY
     Route: 048
     Dates: start: 20090622
  4. CYSTINE [Concomitant]
     Active Substance: CYSTINE

REACTIONS (2)
  - Headache [None]
  - Decreased appetite [None]

NARRATIVE: CASE EVENT DATE: 20090702
